FAERS Safety Report 22319636 (Version 1)
Quarter: 2023Q2

REPORT INFORMATION
  Report Type: Spontaneous
  Country: US (occurrence: US)
  Receive Date: 20230515
  Receipt Date: 20230515
  Transmission Date: 20230722
  Serious: Yes (Hospitalization)
  Sender: FDA-Public Use
  Company Number: US-MYLANLABS-2023M1049377

PATIENT
  Age: 62 Year
  Sex: Female

DRUGS (1)
  1. LITHIUM [Suspect]
     Active Substance: LITHIUM
     Indication: Bipolar disorder
     Dosage: UNK
     Route: 065

REACTIONS (5)
  - Diabetes insipidus [Unknown]
  - Nephrogenic diabetes insipidus [Recovering/Resolving]
  - Hypothalamo-pituitary disorder [Unknown]
  - Atrophy [Unknown]
  - Blood antidiuretic hormone increased [Recovering/Resolving]
